FAERS Safety Report 5092090-0 (Version None)
Quarter: 2006Q3

REPORT INFORMATION
  Report Type: 
  Country: None (occurrence: None)
  Receive Date: 20060829
  Receipt Date: 20060822
  Transmission Date: 20061208
  Serious: Yes (Other)
  Sender: FDA-Public Use
  Company Number: NL-BOEHRINGER INGELHEIM PHARMACEUTICALS, INC.-2006-BP-09970YA

PATIENT
  Sex: Male
  Weight: 92 kg

DRUGS (2)
  1. OMNIC OCAS ORODISPERSABLE CR [Suspect]
     Indication: BENIGN PROSTATIC HYPERPLASIA
     Route: 048
     Dates: start: 20030101, end: 20060801
  2. ACENOCOUMAROL [Concomitant]
     Route: 048
     Dates: start: 20040512

REACTIONS (3)
  - BALANCE DISORDER [None]
  - COUGH [None]
  - TACHYCARDIA [None]
